FAERS Safety Report 5026768-1 (Version None)
Quarter: 2006Q2

REPORT INFORMATION
  Report Type: 
  Country: None (occurrence: None)
  Receive Date: 20060615
  Receipt Date: 20060607
  Transmission Date: 20061013
  Serious: Yes (Life-Threatening, Hospitalization, Other)
  Sender: FDA-Public Use
  Company Number: ES-JNJFOC-20060602077

PATIENT
  Age: 1 Day
  Sex: Female
  Weight: 2.45 kg

DRUGS (2)
  1. DURAGESIC-100 [Suspect]
     Indication: DRUG EXPOSURE DURING PREGNANCY
  2. MORPHINE SULFATE [Suspect]
     Indication: DRUG EXPOSURE DURING PREGNANCY
     Dosage: 5-10 MG, ORAL

REACTIONS (6)
  - CAESAREAN SECTION [None]
  - DRUG EXPOSURE DURING PREGNANCY [None]
  - DRUG WITHDRAWAL SYNDROME NEONATAL [None]
  - MATERNAL CONDITION AFFECTING FOETUS [None]
  - NEONATAL RESPIRATORY DISTRESS SYNDROME [None]
  - PREMATURE BABY [None]
